FAERS Safety Report 8573695 (Version 7)
Quarter: 2012Q4

REPORT INFORMATION
  Report Type: Report from Study
  Country: PL (occurrence: PL)
  Receive Date: 20120522
  Receipt Date: 20121211
  Transmission Date: 20130627
  Serious: Yes (Hospitalization)
  Sender: FDA-Public Use
  Company Number: PL-ROCHE-1066532

PATIENT
  Age: 65 Year
  Sex: Female
  Weight: 72 kg

DRUGS (19)
  1. TOCILIZUMAB [Suspect]
     Indication: RHEUMATOID ARTHRITIS
     Dosage: most recent dose:09 FEB 2012
     Route: 058
     Dates: start: 20110908
  2. TOCILIZUMAB [Suspect]
     Indication: RHEUMATOID ARTHRITIS
     Dosage: most recent dose:19 APR 2012, last dose take: 162 mg
     Route: 058
     Dates: start: 20120223
  3. METFORMIN HYDROCHLORIDE [Concomitant]
  4. INSULINUM HUMANUM [Concomitant]
     Dosage: 22 units
     Route: 058
     Dates: start: 2003, end: 20120429
  5. INSULINUM HUMANUM [Concomitant]
     Dosage: 18 units
     Route: 058
     Dates: start: 2003, end: 20120429
  6. INSULINUM HUMANUM [Concomitant]
     Dosage: 24 units
     Route: 058
     Dates: start: 20120430, end: 20120506
  7. INSULINUM HUMANUM [Concomitant]
     Dosage: 12 units
     Route: 058
     Dates: start: 20120430, end: 20120506
  8. INSULINUM HUMANUM [Concomitant]
     Dosage: 16 units
     Route: 058
     Dates: start: 20120507, end: 20120513
  9. INSULINUM HUMANUM [Concomitant]
     Dosage: 12 units
     Route: 058
     Dates: start: 20120507, end: 20120513
  10. INSULINUM HUMANUM [Concomitant]
     Dosage: 10 units
     Route: 058
     Dates: start: 20120430, end: 20120510
  11. BISOPROLOLI FUMARAS [Concomitant]
     Route: 048
     Dates: start: 2007, end: 20120429
  12. RAMIPRIL [Concomitant]
     Route: 048
     Dates: start: 2007, end: 20120429
  13. RAMIPRIL [Concomitant]
     Route: 048
     Dates: start: 20120430, end: 20120506
  14. ACARBOSUM [Concomitant]
     Route: 048
     Dates: start: 2000, end: 20120429
  15. ACARBOSUM [Concomitant]
     Route: 048
     Dates: start: 20120430, end: 20120514
  16. METFORMIN [Concomitant]
     Route: 048
     Dates: start: 2000, end: 20120429
  17. METFORMIN [Concomitant]
     Route: 048
     Dates: start: 20120430, end: 20120514
  18. SULFATHIAZOLUM NATRICUM [Concomitant]
     Route: 061
     Dates: start: 20120514, end: 20120831
  19. AMMONII BITUMINOSULFONAS [Concomitant]
     Route: 061
     Dates: start: 20120514, end: 20120831

REACTIONS (1)
  - Pyoderma gangrenosum [Recovered/Resolved]
